FAERS Safety Report 4367727-1 (Version None)
Quarter: 2004Q2

REPORT INFORMATION
  Report Type: 
  Country: None (occurrence: None)
  Receive Date: 20040601
  Receipt Date: 20040521
  Transmission Date: 20050107
  Serious: Yes (Other)
  Sender: FDA-Public Use
  Company Number: US-JNJFOC-20040505527

PATIENT
  Age: 21 Year
  Sex: Female

DRUGS (2)
  1. LEVAMISOLE [Suspect]
  2. LEVAMISOLE [Suspect]
     Indication: PYODERMA

REACTIONS (2)
  - OEDEMA [None]
  - PURPURA [None]
